FAERS Safety Report 9210260 (Version 1)
Quarter: 2013Q2

REPORT INFORMATION
  Report Type: Spontaneous
  Country: BR (occurrence: BR)
  Receive Date: 20130404
  Receipt Date: 20130404
  Transmission Date: 20140414
  Serious: Yes (Hospitalization, Disabling, Other)
  Sender: FDA-Public Use
  Company Number: BR-ROCHE-1209128

PATIENT
  Age: 79 Year
  Sex: Female
  Weight: 49 kg

DRUGS (4)
  1. BONVIVA [Suspect]
     Indication: PRODUCT USED FOR UNKNOWN INDICATION
     Route: 048
     Dates: start: 2011
  2. LEXOTAN [Concomitant]
  3. DORMONID (BRAZIL) [Concomitant]
  4. LUDIOMIL [Concomitant]

REACTIONS (8)
  - Trigeminal neuralgia [Unknown]
  - Femur fracture [Unknown]
  - Limb asymmetry [Unknown]
  - VIIth nerve paralysis [Unknown]
  - Fall [Unknown]
  - Rhinorrhoea [Unknown]
  - Ear pruritus [Unknown]
  - Weight decreased [Unknown]
